FAERS Safety Report 6105788-X (Version None)
Quarter: 2009Q1

REPORT INFORMATION
  Report Type: 
  Country: None (occurrence: None)
  Receive Date: 20090227
  Receipt Date: 20081119
  Transmission Date: 20090719
  Serious: Yes (Hospitalization, Other)
  Sender: FDA-Public Use
  Company Number: RB-6394-2008

PATIENT
  Age: 0 Day
  Sex: Male
  Weight: 7.3 kg

DRUGS (2)
  1. SUBOXONE [Suspect]
     Indication: DRUG DEPENDENCE
     Dosage: TRANSPLACENTAL
     Route: 064
     Dates: end: 20080201
  2. SUBUTEX [Suspect]
     Indication: DRUG DEPENDENCE
     Dosage: 2 MG TRANSPLACENTAL
     Route: 064
     Dates: start: 20080201, end: 20081107

REACTIONS (1)
  - DRUG WITHDRAWAL SYNDROME NEONATAL [None]
